FAERS Safety Report 18674409 (Version 1)
Quarter: 2020Q4

REPORT INFORMATION
  Report Type: Report from Study
  Country: US (occurrence: US)
  Receive Date: 20201228
  Receipt Date: 20201228
  Transmission Date: 20210114
  Serious: Yes (Hospitalization)
  Sender: FDA-Public Use
  Company Number: US-JNJFOC-20201244131

PATIENT

DRUGS (2)
  1. DARZALEX [Suspect]
     Active Substance: DARATUMUMAB
     Indication: PLASMA CELL MYELOMA
     Route: 065
     Dates: start: 201301, end: 201907
  2. DARZALEX [Suspect]
     Active Substance: DARATUMUMAB
     Indication: AMYLOIDOSIS

REACTIONS (6)
  - Electrolyte imbalance [Unknown]
  - Dehydration [Unknown]
  - Product use in unapproved indication [Unknown]
  - Syncope [Unknown]
  - Infection [Unknown]
  - Off label use [Unknown]
